FAERS Safety Report 6252854-4 (Version None)
Quarter: 2009Q2

REPORT INFORMATION
  Report Type: 
  Country: None (occurrence: None)
  Receive Date: 20090629
  Receipt Date: 20090629
  Transmission Date: 20091009
  Serious: Yes (Life-Threatening)
  Sender: FDA-Public Use
  Company Number: None

PATIENT
  Age: 92 Year
  Sex: Female

DRUGS (1)
  1. FENTANYL [Suspect]
     Indication: PAIN
     Dosage: FENTANYL 75 MG PATCH ONCE TRANSDERMAL
     Route: 062
     Dates: start: 20080724, end: 20080724

REACTIONS (7)
  - ABDOMINAL PAIN UPPER [None]
  - APNOEA [None]
  - DYSPNOEA [None]
  - FLANK PAIN [None]
  - HERPES ZOSTER [None]
  - RASH [None]
  - UNRESPONSIVE TO STIMULI [None]
